FAERS Safety Report 8561326-3 (Version None)
Quarter: 2012Q3

REPORT INFORMATION
  Report Type: 
  Country: None (occurrence: None)
  Receive Date: 20120802
  Receipt Date: 20120727
  Transmission Date: 20120928
  Serious: Yes (Hospitalization)
  Sender: FDA-Public Use
  Company Number: JP-EISAI INC-E2020-10865-SPO-JP

PATIENT
  Age: 84 Year
  Sex: Female

DRUGS (16)
  1. CEFAZOLIN SODIUM [Concomitant]
     Dosage: 3 DF
     Route: 048
     Dates: start: 20110801, end: 20120401
  2. LAMISIL [Concomitant]
     Dosage: 10 G
     Dates: start: 20120201, end: 20120201
  3. SITAGLIPTIN PHOSPHATE [Concomitant]
     Dosage: 1 DF
     Route: 048
     Dates: start: 20120201, end: 20120401
  4. MICAMLO [Concomitant]
     Dosage: 1 DF
     Route: 048
     Dates: start: 20120101, end: 20120401
  5. LYSOZYME HYDROCHLORIDE [Concomitant]
     Dosage: 2 DF
     Route: 048
     Dates: start: 20120401, end: 20120401
  6. BETAMETHASONE SODIUM PHOSPHATE [Concomitant]
     Dosage: 10 G
     Dates: start: 20120201, end: 20120201
  7. RESPLEN [Concomitant]
     Dosage: 4 DF
     Route: 048
     Dates: start: 20120401, end: 20120401
  8. ACETAMINOPHEN [Concomitant]
     Dosage: 2 DF
     Route: 048
     Dates: start: 20120401, end: 20120401
  9. ARICEPT [Suspect]
     Route: 048
     Dates: start: 20120413, end: 20120420
  10. ALDACTONE [Concomitant]
     Dosage: 1 DF
     Route: 048
     Dates: start: 20120401, end: 20120401
  11. ZITHROMAX [Concomitant]
     Dosage: 2 DF
     Route: 048
     Dates: start: 20120416
  12. MICARDIS [Concomitant]
     Dosage: 1 DF
     Route: 048
     Dates: start: 20110801, end: 20120101
  13. VITANEURIN [Concomitant]
     Dosage: 2 DF
     Route: 048
     Dates: start: 20120401, end: 20120401
  14. ACTOS [Concomitant]
     Indication: DIABETES MELLITUS
     Dosage: 1 DF
     Route: 048
     Dates: start: 20110801, end: 20120401
  15. AMLODIPINE [Concomitant]
     Dosage: 1 DF
     Route: 048
     Dates: start: 20110801, end: 20120101
  16. JANUVIA [Concomitant]
     Dosage: 1 DF
     Route: 048
     Dates: start: 20120101, end: 20120101

REACTIONS (2)
  - CARDIAC FAILURE [None]
  - RHABDOMYOLYSIS [None]
